FAERS Safety Report 9532074 (Version 2)
Quarter: 2014Q4

REPORT INFORMATION
  Report Type: Spontaneous
  Country: US (occurrence: None)
  Receive Date: 20130916
  Receipt Date: 20141218
  Transmission Date: 20150529
  Serious: Yes (Hospitalization)
  Sender: FDA-Public Use
  Company Number: 1713747-2013-99951

PATIENT
  Sex: Female

DRUGS (3)
  1. LIBERTY DIALYSIS CYCLER [Concomitant]
  2. LIBERTY DIALYSIS CYCLER TUBING [Concomitant]
  3. DELFLEX WITH DEXTROSE 1.5% LOW MAGNESIUM LOW CALCIUM [Suspect]
     Active Substance: CALCIUM CHLORIDE\DEXTROSE MONOHYDRATE\MAGNESIUM CHLORIDE\SODIUM CHLORIDE\SODIUM LACTATE

REACTIONS (2)
  - Peritonitis [None]
  - Product colour issue [None]

NARRATIVE: CASE EVENT DATE: 20130820
